FAERS Safety Report 13303571 (Version 8)
Quarter: 2017Q3

REPORT INFORMATION
  Report Type: Report from Study
  Country: US (occurrence: US)
  Receive Date: 20170307
  Receipt Date: 20170726
  Transmission Date: 20171127
  Serious: Yes (Death, Hospitalization, Other)
  Sender: FDA-Public Use
  Company Number: US-ACTELION-A-US2016-144902

PATIENT
  Age: 60 Year
  Sex: Male
  Weight: 69.84 kg

DRUGS (3)
  1. VELETRI [Suspect]
     Active Substance: EPOPROSTENOL
     Indication: PULMONARY HYPERTENSION
     Dosage: 11 NG/KG, PER MIN
     Route: 042
     Dates: start: 20161018
  2. VELETRI [Suspect]
     Active Substance: EPOPROSTENOL
     Dosage: 13 NG/KG, PER MIN
     Route: 042
  3. SILDENAFIL CITRATE. [Concomitant]
     Active Substance: SILDENAFIL CITRATE

REACTIONS (13)
  - Dialysis [Unknown]
  - Tracheobronchial stent insertion [Unknown]
  - Dyspnoea [Unknown]
  - Headache [Unknown]
  - Death [Fatal]
  - Tracheal mass [Unknown]
  - Pain in jaw [Unknown]
  - Oedema [Unknown]
  - Respiratory disorder [Unknown]
  - Respiratory failure [Unknown]
  - Pneumonia [Unknown]
  - Malaise [Unknown]
  - Cardiac disorder [Unknown]

NARRATIVE: CASE EVENT DATE: 20170315
